FAERS Safety Report 7338744-4 (Version None)
Quarter: 2011Q1

REPORT INFORMATION
  Report Type: 
  Country: None (occurrence: None)
  Receive Date: 20110308
  Receipt Date: 20110303
  Transmission Date: 20110831
  Serious: Yes (Death)
  Sender: FDA-Public Use
  Company Number: B0704487A

PATIENT
  Age: 80 Year
  Sex: Male

DRUGS (1)
  1. ARIXTRA [Suspect]
     Indication: THROMBOSIS PROPHYLAXIS
     Dosage: 2.5MG PER DAY
     Route: 058
     Dates: start: 20110228, end: 20110301

REACTIONS (3)
  - CEREBRAL ARTERY EMBOLISM [None]
  - PULMONARY EMBOLISM [None]
  - THROMBOSIS [None]
